FAERS Safety Report 4377257-9 (Version None)
Quarter: 2004Q2

REPORT INFORMATION
  Report Type: 
  Country: None (occurrence: None)
  Receive Date: 20040609
  Receipt Date: 20040310
  Transmission Date: 20050107
  Serious: No
  Sender: FDA-Public Use
  Company Number: 2004203438US

PATIENT
  Age: 58 Year
  Sex: Male

DRUGS (2)
  1. BEXTRA [Suspect]
     Indication: ARTHRITIS
     Dosage: 10 MG, QD, UNK
     Dates: start: 20040308
  2. PROTONIX [Concomitant]

REACTIONS (2)
  - ABDOMINAL PAIN UPPER [None]
  - THROAT IRRITATION [None]
